FAERS Safety Report 11701232 (Version 1)
Quarter: 2015Q4

REPORT INFORMATION
  Report Type: Spontaneous
  Country: ES (occurrence: ES)
  Receive Date: 20151105
  Receipt Date: 20151105
  Transmission Date: 20160304
  Serious: Yes (Hospitalization)
  Sender: FDA-Public Use
  Company Number: ES-MYLANLABS-2015M1037878

PATIENT

DRUGS (1)
  1. LEVONORGESTREL. [Suspect]
     Active Substance: LEVONORGESTREL
     Indication: CONTRACEPTION
     Route: 015

REACTIONS (1)
  - Cerebral venous thrombosis [Recovered/Resolved]
